FAERS Safety Report 5290195-2 (Version None)
Quarter: 2007Q2

REPORT INFORMATION
  Report Type: 
  Country: None (occurrence: None)
  Receive Date: 20070402
  Receipt Date: 20070327
  Transmission Date: 20071010
  Serious: Yes (Hospitalization)
  Sender: FDA-Public Use
  Company Number: 2007S1000064

PATIENT
  Age: 17 Year
  Sex: Male
  Weight: 80.4 kg

DRUGS (11)
  1. INOMAX [Suspect]
     Indication: SICKLE CELL ANAEMIA
     Dosage: SEE IMAGE
     Route: 055
     Dates: start: 20070315, end: 20070315
  2. INOMAX [Suspect]
     Indication: SICKLE CELL ANAEMIA
     Dosage: SEE IMAGE
     Route: 055
     Dates: start: 20070315, end: 20070315
  3. INOMAX [Suspect]
     Indication: SICKLE CELL ANAEMIA
     Dosage: SEE IMAGE
     Route: 055
     Dates: start: 20070315, end: 20070318
  4. HYDROXYUREA [Concomitant]
  5. ALBUTEROL [Concomitant]
  6. OXYCODONE HCL [Concomitant]
  7. HYDROMORPHONE HCL [Concomitant]
  8. MS CONTIN [Concomitant]
  9. IBUPROFEN [Concomitant]
  10. CEFTIZOXIME [Concomitant]
  11. AZITHROMYCIN [Concomitant]

REACTIONS (4)
  - ACUTE CHEST SYNDROME [None]
  - MYCOPLASMA INFECTION [None]
  - PAIN IN EXTREMITY [None]
  - PNEUMONIA [None]
